FAERS Safety Report 6820413-8 (Version None)
Quarter: 2010Q3

REPORT INFORMATION
  Report Type: 
  Country: None (occurrence: None)
  Receive Date: 20100707
  Receipt Date: 20100618
  Transmission Date: 20110219
  Serious: No
  Sender: FDA-Public Use
  Company Number: US-TEVA-239543USA

PATIENT
  Sex: Female
  Weight: 64.468 kg

DRUGS (3)
  1. SALBUTAMOL SULFATE INHALATION, 0.09 MG [Suspect]
     Route: 055
     Dates: start: 20100617
  2. BECLOMETASONE DIPROPIONATE [Concomitant]
     Route: 055
     Dates: start: 20100617
  3. MOXIFLOXACIN HYDROCHLORIDE [Concomitant]

REACTIONS (1)
  - NAUSEA [None]
